FAERS Safety Report 6973565-3 (Version None)
Quarter: 2010Q3

REPORT INFORMATION
  Report Type: 
  Country: None (occurrence: None)
  Receive Date: 20100909
  Receipt Date: 20100831
  Transmission Date: 20110219
  Serious: Yes (Other)
  Sender: FDA-Public Use
  Company Number: ZA-SOLVAY-00210005421

PATIENT
  Age: 19572 Day
  Sex: Male

DRUGS (1)
  1. PREXUM [Suspect]
     Indication: HYPERTENSION
     Dosage: DAILY DOSE: 4 MILLIGRAM(S)
     Route: 048
     Dates: start: 20100818, end: 20100828

REACTIONS (2)
  - CHOKING SENSATION [None]
  - EPIGLOTTIC OEDEMA [None]
